FAERS Safety Report 8606404-5 (Version None)
Quarter: 2012Q3

REPORT INFORMATION
  Report Type: 
  Country: None (occurrence: None)
  Receive Date: 20120820
  Receipt Date: 20120817
  Transmission Date: 20120928
  Serious: Yes (Death)
  Sender: FDA-Public Use
  Company Number: AU-B.I. PHARMACEUTICALS,INC./RIDGEFIELD-2012-AU-00324AU

PATIENT
  Sex: Male

DRUGS (7)
  1. CALCIPOTRIENE [Concomitant]
  2. PRADAXA [Suspect]
     Indication: ATRIAL FIBRILLATION
  3. ATENOLOL [Concomitant]
     Dosage: 50 MG
  4. PRADAXA [Suspect]
     Indication: CEREBROVASCULAR ACCIDENT PROPHYLAXIS
     Dosage: 300 MG
     Dates: start: 20110819, end: 20110927
  5. ELOCON [Concomitant]
  6. BETAMETHASONE [Concomitant]
  7. EZETIMIBE [Concomitant]

REACTIONS (6)
  - FALL [None]
  - PLATELET COUNT DECREASED [None]
  - SUBARACHNOID HAEMORRHAGE [None]
  - ASTHENIA [None]
  - CONTUSION [None]
  - ANAEMIA [None]
